FAERS Safety Report 20071238 (Version 2)
Quarter: 2021Q4

REPORT INFORMATION
  Report Type: Report from Study
  Country: US (occurrence: US)
  Receive Date: 20211115
  Receipt Date: 20211220
  Transmission Date: 20220303
  Serious: Yes (Other)
  Sender: FDA-Public Use
  Company Number: US-SEATTLE GENETICS-2021SGN01517

PATIENT
  Sex: Female

DRUGS (8)
  1. TUCATINIB [Suspect]
     Active Substance: TUCATINIB
     Indication: Breast cancer female
     Dosage: UNK
     Route: 048
  2. TUCATINIB [Suspect]
     Active Substance: TUCATINIB
     Dosage: UNK
     Route: 065
  3. TUCATINIB [Suspect]
     Active Substance: TUCATINIB
     Dosage: UNK
     Route: 065
  4. TUCATINIB [Suspect]
     Active Substance: TUCATINIB
     Dosage: UNK
     Route: 065
  5. TUCATINIB [Suspect]
     Active Substance: TUCATINIB
     Dosage: UNK
     Route: 065
  6. TUCATINIB [Suspect]
     Active Substance: TUCATINIB
     Dosage: UNK
     Route: 065
  7. TUCATINIB [Suspect]
     Active Substance: TUCATINIB
     Dosage: UNK
     Route: 065
  8. CAPECITABINE [Suspect]
     Active Substance: CAPECITABINE
     Indication: Breast cancer female
     Route: 065

REACTIONS (15)
  - Renal impairment [Unknown]
  - Neuropathy peripheral [Unknown]
  - Limb discomfort [Unknown]
  - Blood creatinine increased [Unknown]
  - Dyspepsia [Unknown]
  - Pain in extremity [Unknown]
  - Burning sensation [Unknown]
  - Skin tightness [Unknown]
  - Musculoskeletal disorder [Unknown]
  - Palmar-plantar erythrodysaesthesia syndrome [Unknown]
  - Erythema [Unknown]
  - Skin exfoliation [Unknown]
  - Oral pain [Unknown]
  - Stomatitis [Unknown]
  - Diarrhoea [Unknown]
